FAERS Safety Report 15762607 (Version 2)
Quarter: 2019Q1

REPORT INFORMATION
  Report Type: Report from Study
  Country: US (occurrence: US)
  Receive Date: 20181226
  Receipt Date: 20190115
  Transmission Date: 20190417
  Serious: Yes (Hospitalization, Other)
  Sender: FDA-Public Use
  Company Number: US-THERATECHNOLOGIES, INC.-TH-2018-00403

PATIENT

DRUGS (12)
  1. DARUNAVIR [Concomitant]
     Active Substance: DARUNAVIR
     Dosage: 800 MG MILLIGRAM(S), DAILY DOSE
     Route: 048
     Dates: start: 2011
  2. CENTRUM SILVER                     /02363801/ [Concomitant]
     Active Substance: MINERALS\VITAMINS
     Dosage: 1 TABLET, DAILY DOSE
     Route: 048
     Dates: start: 2017
  3. IBUPROFEN. [Concomitant]
     Active Substance: IBUPROFEN
     Dosage: 200 MG MILLIGRAM(S), PRN
     Route: 048
     Dates: start: 2018
  4. RITONAVIR. [Concomitant]
     Active Substance: RITONAVIR
     Dosage: 100 MG MILLIGRAM(S), DAILY DOSE
     Route: 048
     Dates: start: 2011
  5. OMEGA 3                            /01333901/ [Concomitant]
     Active Substance: FISH OIL\TOCOPHEROL
     Dosage: 1 TABLET, DAILY DOSE
     Route: 048
     Dates: start: 2018
  6. ATORVASTATIN [Concomitant]
     Active Substance: ATORVASTATIN
     Dosage: 20 MG MILLIGRAM(S), DAILY DOSE
     Route: 048
     Dates: start: 2016
  7. GINKO BILOBA [Concomitant]
     Active Substance: GINKGO
     Dosage: 120 MG MILLIGRAM(S), DAILY DOSE
     Route: 048
     Dates: start: 2017
  8. EMTRICITABINE W/TENOFOVIR [Concomitant]
     Active Substance: EMTRICITABINE\TENOFOVIR DISOPROXIL
     Dosage: 200/25 MG MILLIGRAM(S), DAILY DOSE
     Route: 048
     Dates: start: 2018
  9. EGRIFTA [Suspect]
     Active Substance: TESAMORELIN
     Dosage: 2 MG MILLIGRAM(S), DAILY DOSE
     Route: 058
     Dates: start: 20181106
  10. BILBERRY                           /01397601/ [Concomitant]
     Active Substance: BILBERRY
     Dosage: 1 TABLET, DAILY DOSE
     Route: 048
     Dates: start: 2017
  11. EGRIFTA [Suspect]
     Active Substance: TESAMORELIN
     Indication: NON-ALCOHOLIC STEATOHEPATITIS
     Dosage: 2 MG MILLIGRAM(S), DAILY DOSE
     Route: 058
     Dates: start: 20180616, end: 20181030
  12. ACETAMINOPHEN. [Concomitant]
     Active Substance: ACETAMINOPHEN
     Dosage: 650 MG MILLIGRAM(S), PRN
     Route: 048
     Dates: start: 2018

REACTIONS (1)
  - Depression [Recovered/Resolved]

NARRATIVE: CASE EVENT DATE: 20181030
